FAERS Safety Report 5340293-X (Version None)
Quarter: 2007Q2

REPORT INFORMATION
  Report Type: 
  Country: None (occurrence: None)
  Receive Date: 20070405
  Receipt Date: 20061210
  Transmission Date: 20071010
  Serious: Yes (Death)
  Sender: FDA-Public Use
  Company Number: US200612001754

PATIENT
  Age: 47 Year
  Sex: Male

DRUGS (2)
  1. CYMBALTA [Suspect]
     Dates: start: 20061207
  2. KLONOPIN [Concomitant]

REACTIONS (1)
  - COMPLETED SUICIDE [None]
